FAERS Safety Report 9685180 (Version 1)
Quarter: 2013Q4

REPORT INFORMATION
  Report Type: Spontaneous
  Country: US (occurrence: US)
  Receive Date: 20131113
  Receipt Date: 20131113
  Transmission Date: 20140711
  Serious: Yes (Other)
  Sender: FDA-Public Use
  Company Number: US-ACCORD-020211

PATIENT
  Age: 64 Year
  Sex: Female
  Weight: 56.82 kg

DRUGS (3)
  1. ACCORD^S NALTREXONE [Suspect]
     Indication: ALCOHOLISM
     Route: 048
     Dates: start: 20131029, end: 20131030
  2. SERTRALINE [Concomitant]
     Route: 065
  3. LAMOTRIGINE [Concomitant]
     Route: 065

REACTIONS (6)
  - Restlessness [Not Recovered/Not Resolved]
  - Insomnia [Not Recovered/Not Resolved]
  - Decreased appetite [Not Recovered/Not Resolved]
  - Tachyphrenia [Not Recovered/Not Resolved]
  - Fear [Not Recovered/Not Resolved]
  - Anxiety [Not Recovered/Not Resolved]
